FAERS Safety Report 18275042 (Version 4)
Quarter: 2020Q4

REPORT INFORMATION
  Report Type: Report from Study
  Country: US (occurrence: US)
  Receive Date: 20200916
  Receipt Date: 20201128
  Transmission Date: 20210113
  Serious: Yes (Other)
  Sender: FDA-Public Use
  Company Number: NVSC2020US253256

PATIENT
  Sex: Female

DRUGS (3)
  1. PIQRAY [Suspect]
     Active Substance: ALPELISIB
     Dosage: 250 MG, QD
     Route: 048
  2. PIQRAY [Suspect]
     Active Substance: ALPELISIB
     Dosage: 200 MG, QD
     Route: 048
  3. PIQRAY [Suspect]
     Active Substance: ALPELISIB
     Indication: PRODUCT USED FOR UNKNOWN INDICATION
     Dosage: UNK
     Route: 048

REACTIONS (10)
  - Nasal dryness [Unknown]
  - Eructation [Unknown]
  - Flatulence [Unknown]
  - Stomatitis [Unknown]
  - Dry eye [Unknown]
  - Rash [Unknown]
  - Erythema [Unknown]
  - Carcinoembryonic antigen increased [Unknown]
  - Gingival discomfort [Unknown]
  - Gingival disorder [Unknown]
